FAERS Safety Report 5362924-0 (Version None)
Quarter: 2007Q2

REPORT INFORMATION
  Report Type: 
  Country: None (occurrence: None)
  Receive Date: 20070615
  Receipt Date: 20070605
  Transmission Date: 20071010
  Serious: Yes (Death, Other)
  Sender: FDA-Public Use
  Company Number: 2007S1000200

PATIENT
  Sex: Female

DRUGS (2)
  1. CUBICIN [Suspect]
     Indication: ENTEROCOCCAL BACTERAEMIA
     Dates: start: 20050402, end: 20050505
  2. LINEZOLID [Concomitant]

REACTIONS (2)
  - BACTERAEMIA [None]
  - ENTEROCOCCAL INFECTION [None]
